FAERS Safety Report 25994221 (Version 1)
Quarter: 2025Q4

REPORT INFORMATION
  Report Type: Spontaneous
  Country: US (occurrence: US)
  Receive Date: 20251104
  Receipt Date: 20251104
  Transmission Date: 20260117
  Serious: Yes (Other)
  Sender: COOPERSURGICAL
  Company Number: US-COOPERSURGICAL, INC.-2025CPS007749

PATIENT
  Age: 22 Year
  Sex: Female
  Weight: 66.667 kg

DRUGS (3)
  1. PARAGARD T 380A [Suspect]
     Active Substance: COPPER
     Indication: Contraception
     Dosage: UNK
     Route: 015
     Dates: start: 20150304, end: 20220509
  2. TRETINOIN [Concomitant]
     Active Substance: TRETINOIN
     Dosage: UNK
     Dates: start: 201409
  3. LEXAPRO [Concomitant]
     Active Substance: ESCITALOPRAM OXALATE
     Dosage: UNK
     Dates: start: 201607

REACTIONS (10)
  - Surgery [Recovered/Resolved]
  - Device breakage [Recovered/Resolved]
  - Foreign body in reproductive tract [Recovered/Resolved]
  - Complication of device removal [Recovered/Resolved]
  - Embedded device [Recovered/Resolved]
  - Procedural pain [Recovered/Resolved]
  - Emotional distress [Unknown]
  - Heavy menstrual bleeding [Recovered/Resolved]
  - Dysmenorrhoea [Unknown]
  - Pelvic pain [Recovered/Resolved]

NARRATIVE: CASE EVENT DATE: 20150304
